FAERS Safety Report 24393359 (Version 1)
Quarter: 2024Q4

REPORT INFORMATION
  Report Type: Spontaneous
  Country: IT (occurrence: IT)
  Receive Date: 20241003
  Receipt Date: 20241003
  Transmission Date: 20250114
  Serious: Yes (Death, Other)
  Sender: SANDOZ
  Company Number: IT-KRKA-IT2024K07641LIT

PATIENT
  Age: 55 Year
  Sex: Male

DRUGS (13)
  1. BORTEZOMIB [Suspect]
     Active Substance: BORTEZOMIB
     Indication: Plasma cell myeloma
     Dosage: UNK
     Route: 065
     Dates: start: 202201
  2. CARFILZOMIB [Suspect]
     Active Substance: CARFILZOMIB
     Indication: Plasma cell myeloma
     Dosage: UNK
     Route: 065
     Dates: start: 202205
  3. CARFILZOMIB [Suspect]
     Active Substance: CARFILZOMIB
     Dosage: UNK
     Route: 065
     Dates: start: 202205
  4. DECADRON (DEXAMETHASONE SODIUM PHOSPHATE) [Suspect]
     Active Substance: DEXAMETHASONE SODIUM PHOSPHATE
     Indication: Plasma cell myeloma
     Dosage: UNK
     Route: 065
     Dates: start: 202201
  5. DARATUMUMAB [Suspect]
     Active Substance: DARATUMUMAB
     Indication: Plasma cell myeloma
     Dosage: UNK
     Route: 065
     Dates: start: 202201
  6. LENALIDOMIDE [Suspect]
     Active Substance: LENALIDOMIDE
     Indication: Plasma cell myeloma
     Dosage: UNK
     Route: 065
     Dates: start: 202209
  7. LENALIDOMIDE [Suspect]
     Active Substance: LENALIDOMIDE
     Dosage: UNK
     Route: 065
     Dates: start: 202205
  8. THALIDOMIDE [Suspect]
     Active Substance: THALIDOMIDE
     Indication: Plasma cell myeloma
     Dosage: UNK
     Route: 065
     Dates: start: 202201
  9. ALLOPURINOL [Concomitant]
     Active Substance: ALLOPURINOL
     Indication: Product used for unknown indication
     Dosage: UNK
     Route: 065
  10. ALLOPURINOL [Concomitant]
     Active Substance: ALLOPURINOL
     Dosage: UNK
     Route: 065
  11. ALLOPURINOL [Concomitant]
     Active Substance: ALLOPURINOL
     Route: 065
  12. COTRIMOXAZOLE [Concomitant]
     Active Substance: SULFAMETHOXAZOLE\TRIMETHOPRIM
     Indication: Product used for unknown indication
     Dosage: UNK
     Route: 065
  13. COTRIMOXAZOLE [Concomitant]
     Active Substance: SULFAMETHOXAZOLE\TRIMETHOPRIM
     Indication: Product used for unknown indication
     Route: 065

REACTIONS (4)
  - Plasma cell myeloma [Fatal]
  - Psoriasis [Unknown]
  - Renal impairment [Unknown]
  - Drug ineffective [Unknown]

NARRATIVE: CASE EVENT DATE: 20220501
